FAERS Safety Report 6348382-8 (Version None)
Quarter: 2009Q3

REPORT INFORMATION
  Report Type: 
  Country: None (occurrence: None)
  Receive Date: 20090908
  Receipt Date: 20090826
  Transmission Date: 20100115
  Serious: Yes (Other)
  Sender: FDA-Public Use
  Company Number: CHPA2009US17730

PATIENT
  Age: 48 Year
  Sex: Female
  Weight: 53.1 kg

DRUGS (5)
  1. EXEDRIN MIGRAINE        (CAFFEINE CITRATE, ACETYLSALICYLIC ACID, ACETA [Suspect]
     Indication: MIGRAINE
     Dosage: 2 DF, QD, ORAL
     Route: 048
  2. FOSAMAX [Concomitant]
  3. OGEN [Concomitant]
  4. CYTOMEL [Concomitant]
  5. LEVOXYL [Concomitant]

REACTIONS (4)
  - BLOOD CHOLESTEROL ABNORMAL [None]
  - DEPRESSION [None]
  - DIZZINESS [None]
  - VERTIGO [None]
